FAERS Safety Report 18654769 (Version 1)
Quarter: 2020Q4

REPORT INFORMATION
  Report Type: Spontaneous
  Country: US (occurrence: US)
  Receive Date: 20201223
  Receipt Date: 20201223
  Transmission Date: 20210114
  Serious: No
  Sender: FDA-Public Use
  Company Number: US-ALKERMES INC.-ALK-2020-005791

PATIENT
  Age: 29 Year
  Sex: Male

DRUGS (1)
  1. ARISTADA [Suspect]
     Active Substance: ARIPIPRAZOLE LAUROXIL
     Indication: BIPOLAR I DISORDER
     Dosage: 441 MILLIGRAM, QMO
     Route: 030

REACTIONS (5)
  - Depressed mood [Unknown]
  - Apathy [Unknown]
  - Mood altered [Unknown]
  - Off label use [Not Recovered/Not Resolved]
  - Fatigue [Unknown]
